FAERS Safety Report 11056002 (Version 1)
Quarter: 2015Q2

REPORT INFORMATION
  Report Type: Spontaneous
  Country: FR (occurrence: FR)
  Receive Date: 20150422
  Receipt Date: 20150422
  Transmission Date: 20150821
  Serious: Yes (Hospitalization, Other)
  Sender: FDA-Public Use
  Company Number: FR-ASTRAZENECA-2015SE36375

PATIENT
  Age: 29772 Day
  Sex: Female

DRUGS (9)
  1. SYMBICORT [Suspect]
     Active Substance: BUDESONIDE\FORMOTEROL FUMARATE DIHYDRATE
     Indication: BRONCHITIS CHRONIC
     Dosage: 320/9 UG PER DOSE ; 2 DF PER DAY
     Route: 055
  2. XALATAN [Concomitant]
     Active Substance: LATANOPROST
  3. AZOPT [Concomitant]
     Active Substance: BRINZOLAMIDE
  4. PREVISCAN [Interacting]
     Active Substance: FLUINDIONE
     Indication: ATRIAL FIBRILLATION
     Dosage: 20 MG ; ONE DF IN THE EVENING ALTERNATED WITH 1.25 DF IN THE EVENING ON TUESDAYS AND FRIDAYS
     Route: 048
     Dates: start: 201404, end: 20141230
  5. LEVOTHYROX [Concomitant]
     Active Substance: LEVOTHYROXINE
  6. ALTEISDUO [Concomitant]
     Active Substance: HYDROCHLOROTHIAZIDE\OLMESARTAN MEDOXOMIL
     Dosage: 20 MG / 12.5 MG
  7. CHONDROSULF [Concomitant]
     Active Substance: CHONDROITIN SULFATE (CHICKEN)
  8. PREVISCAN [Interacting]
     Active Substance: FLUINDIONE
     Indication: ARRHYTHMIA
     Dosage: 20 MG ; ONE DF IN THE EVENING ALTERNATED WITH 1.25 DF IN THE EVENING ON TUESDAYS AND FRIDAYS
     Route: 048
     Dates: start: 201404, end: 20141230
  9. IXPRIM [Concomitant]
     Active Substance: ACETAMINOPHEN\TRAMADOL HYDROCHLORIDE

REACTIONS (7)
  - Epistaxis [Recovered/Resolved]
  - Atrial fibrillation [Recovered/Resolved]
  - Arrhythmia [Recovered/Resolved]
  - Anaemia [Recovered/Resolved]
  - Drug interaction [Unknown]
  - Melaena [Recovered/Resolved]
  - International normalised ratio increased [Recovered/Resolved]

NARRATIVE: CASE EVENT DATE: 20141230
